FAERS Safety Report 20758798 (Version 2)
Quarter: 2025Q2

REPORT INFORMATION
  Report Type: Report from Study
  Country: US (occurrence: US)
  Receive Date: 20220427
  Receipt Date: 20250526
  Transmission Date: 20250716
  Serious: No
  Sender: KYOWA
  Company Number: US-KYOWAKIRIN-2022BKK005798

PATIENT

DRUGS (3)
  1. BUROSUMAB [Suspect]
     Active Substance: BUROSUMAB
     Indication: Hereditary hypophosphataemic rickets
     Dosage: 30 MG, 1X/2 WEEKS
     Route: 065
     Dates: start: 20190514
  2. BUROSUMAB [Suspect]
     Active Substance: BUROSUMAB
     Dosage: 30 MG, 1X/2 WEEKS
     Route: 065
     Dates: start: 20211222
  3. BUROSUMAB [Suspect]
     Active Substance: BUROSUMAB
     Dosage: UNK, 1X/2 WEEKS
     Route: 065

REACTIONS (6)
  - Chest pain [Unknown]
  - Asthma [Unknown]
  - Weight increased [Unknown]
  - Cough [Unknown]
  - Hypersensitivity [Unknown]
  - Pain [Unknown]
